FAERS Safety Report 4664833-9 (Version None)
Quarter: 2005Q2

REPORT INFORMATION
  Report Type: 
  Country: None (occurrence: None)
  Receive Date: 20050517
  Receipt Date: 20050510
  Transmission Date: 20051028
  Serious: Yes (Other)
  Sender: FDA-Public Use
  Company Number: HQWYE648911MAY05

PATIENT
  Age: 71 Year
  Sex: Female

DRUGS (2)
  1. MINOCYCLINE HCL [Suspect]
     Indication: ROSACEA
     Dosage: 150 MG DAILY ORAL
     Route: 048
     Dates: start: 20050414, end: 20050418
  2. SELBEX (TEPRENONE) [Concomitant]

REACTIONS (2)
  - DEAFNESS [None]
  - TINNITUS [None]
